FAERS Safety Report 18581302 (Version 1)
Quarter: 2020Q4

REPORT INFORMATION
  Report Type: Spontaneous
  Country: US (occurrence: US)
  Receive Date: 20201204
  Receipt Date: 20201204
  Transmission Date: 20210114
  Serious: Yes (Other)
  Sender: FDA-Public Use
  Company Number: US-HARMONY BIOSCIENCES-2020HMY01415

PATIENT
  Sex: Female
  Weight: 48.07 kg

DRUGS (28)
  1. PROTONIX [Concomitant]
     Active Substance: PANTOPRAZOLE SODIUM
     Route: 048
  2. SENOKOT [Concomitant]
     Active Substance: SENNOSIDES
     Dosage: 8.6 MG, EVERY 48 HOURS (EVERY MONDAY, WEDNESDAY, AND FRIDAY)
     Route: 048
  3. SIMETHICONE (DIMETHICONE) [Concomitant]
     Active Substance: DIMETHICONE
     Dosage: 1-2 CAPSULES (125-250 MG), 1X/DAY AS NEEDED
  4. UNSPECIFIED STIMULANT MEDICATION [Concomitant]
  5. WAKIX [Suspect]
     Active Substance: PITOLISANT HYDROCHLORIDE
     Indication: CATAPLEXY
  6. WAKIX [Suspect]
     Active Substance: PITOLISANT HYDROCHLORIDE
     Indication: CATAPLEXY
  7. ASPIRIN. [Concomitant]
     Active Substance: ASPIRIN
     Dosage: 81 MG, 1X/DAY
     Route: 048
  8. NORCO [Concomitant]
     Active Substance: ACETAMINOPHEN\HYDROCODONE BITARTRATE
     Dosage: 1 TABLETS, 6X/DAY AS NEEDED
     Route: 048
  9. SYNTHROID; LEVOTHROID [Concomitant]
     Dosage: 100 ?G, 1X/DAY
     Route: 048
  10. PENLAC [Concomitant]
     Active Substance: CICLOPIROX
  11. CELEXA [Concomitant]
     Active Substance: CITALOPRAM HYDROBROMIDE
     Dosage: 20 MG, 1X/DAY
     Route: 048
  12. WAKIX [Suspect]
     Active Substance: PITOLISANT HYDROCHLORIDE
     Indication: NARCOLEPSY
     Dosage: 17.8 MG, 1X/DAY
     Route: 048
  13. VITAMIN B12 [Concomitant]
     Active Substance: CYANOCOBALAMIN
     Dosage: 1000 ?G, 2X/MONTH (EVERY 14 DAYS)
     Route: 030
  14. REGLAN [Concomitant]
     Active Substance: METOCLOPRAMIDE HYDROCHLORIDE
     Dosage: 10 MG, 1X/DAY
     Route: 048
  15. PRESERVISION AREDS [Concomitant]
     Active Substance: MINERALS\VITAMINS
     Dosage: 1 CAPSULES, 1X/DAY
  16. COLACE [Concomitant]
     Active Substance: DOCUSATE SODIUM
     Dosage: 100 MG, EVERY 48 HOURS (EVERY OTHER DAY)
     Route: 048
  17. NEURONTIN [Concomitant]
     Active Substance: GABAPENTIN
     Dosage: 300 MG, 3X/DAY
     Route: 048
  18. ZOFRAN [Concomitant]
     Active Substance: ONDANSETRON HYDROCHLORIDE
     Dosage: 8 MG, 3X/DAY (EVERY 8 HOURS)AS NEEDED
     Route: 048
  19. WELLBUTRIN SR [Concomitant]
     Active Substance: BUPROPION HYDROCHLORIDE
  20. COREG [Concomitant]
     Active Substance: CARVEDILOL
     Dosage: 3.125 MG, 1X/DAY
     Route: 048
  21. VITAMIIN D3 [Concomitant]
     Dosage: 1000 DOSAGE UNITS, 1X/DAY
     Route: 048
  22. CLARITIN-D 24 HOUR [Concomitant]
     Active Substance: LORATADINE\PSEUDOEPHEDRINE SULFATE
     Dosage: 1 TABLETS, 1X/DAY
     Route: 048
  23. LASIX [Concomitant]
     Active Substance: FUROSEMIDE
     Dosage: 20 MG, 1X/DAY
     Route: 048
  24. PRINIVIL; ZESTRIL [Concomitant]
     Dosage: 2.5 MG, 1X/DAY
     Route: 048
  25. CLARITIN [Concomitant]
     Active Substance: LORATADINE
     Dosage: 10 MG, 1X/DAY
     Route: 048
  26. RITALIN [Concomitant]
     Active Substance: METHYLPHENIDATE HYDROCHLORIDE
     Dosage: 80 MG, 3X/DAY
     Route: 048
  27. WAKIX [Suspect]
     Active Substance: PITOLISANT HYDROCHLORIDE
     Indication: NARCOLEPSY
     Dosage: 8.9 MG, 1X/DAY
     Route: 048
  28. PROLIA [Concomitant]
     Active Substance: DENOSUMAB
     Dosage: 60 MG, 2X/YEAR (EVERY 6 MONTHS)
     Route: 058

REACTIONS (14)
  - Psychomotor hyperactivity [Not Recovered/Not Resolved]
  - Weight decreased [Not Recovered/Not Resolved]
  - Confusional state [Not Recovered/Not Resolved]
  - Disturbance in attention [Not Recovered/Not Resolved]
  - Nervousness [Not Recovered/Not Resolved]
  - Sleep disorder [Not Recovered/Not Resolved]
  - Agitation [Not Recovered/Not Resolved]
  - Sleep-related eating disorder [Not Recovered/Not Resolved]
  - Insomnia [Not Recovered/Not Resolved]
  - Somnambulism [Not Recovered/Not Resolved]
  - Depression [Recovered/Resolved]
  - Anxiety [Recovered/Resolved]
  - Suicidal ideation [Recovered/Resolved]
  - Rapid eye movement sleep behaviour disorder [Not Recovered/Not Resolved]
